FAERS Safety Report 5048956-0 (Version None)
Quarter: 2006Q3

REPORT INFORMATION
  Report Type: 
  Country: None (occurrence: None)
  Receive Date: 20060712
  Receipt Date: 20050928
  Transmission Date: 20061208
  Serious: No
  Sender: FDA-Public Use
  Company Number: US-GLAXOSMITHKLINE-A0576244A

PATIENT
  Age: 36 Year
  Sex: Female

DRUGS (8)
  1. IMITREX [Suspect]
     Indication: MIGRAINE
     Dosage: 100MG TWICE PER DAY
     Route: 048
  2. DIOVAN [Concomitant]
  3. ZOLOFT [Concomitant]
  4. TEGRETOL [Concomitant]
  5. DETROL [Concomitant]
  6. ATIVAN [Concomitant]
  7. LIPITOR [Concomitant]
  8. CLARITIN [Concomitant]

REACTIONS (2)
  - DRUG INEFFECTIVE [None]
  - PHARMACEUTICAL PRODUCT COMPLAINT [None]
